FAERS Safety Report 8955537 (Version 3)
Quarter: 2014Q1

REPORT INFORMATION
  Report Type: Report from Study
  Country: JP (occurrence: JP)
  Receive Date: 20121210
  Receipt Date: 20140106
  Transmission Date: 20141002
  Serious: Yes (Other)
  Sender: FDA-Public Use
  Company Number: JP-009507513-2012SP020094

PATIENT
  Age: 39 Year
  Sex: Female
  Weight: 54 kg

DRUGS (5)
  1. HMG TEIZO [Concomitant]
     Indication: IN VITRO FERTILISATION
     Dosage: TOTAL DAILY DOSE 150 (UNDER 1000 UNIT), SEPARATE NO: 1 INTERVAL: 1 DAY
     Route: 030
     Dates: start: 20120111, end: 20120115
  2. HCG MOCHIDA [Concomitant]
     Indication: OVULATION INDUCTION
     Dosage: TOTAL DAILY DOSE: 5 (THOUSAND-MILLION UNIT), SEPARATE NO: 1, INTERVAL: 1 DAY
     Route: 030
     Dates: start: 20120116, end: 20120116
  3. GANIRELIX ACETATE [Suspect]
     Indication: PREVENTION OF PREMATURE OVULATION
     Dosage: 0.25 MG, QD
     Route: 058
     Dates: start: 20120113, end: 20120115
  4. PLANOVAR [Concomitant]
     Indication: IN VITRO FERTILISATION
     Dosage: 1 DF, QD
     Route: 048
     Dates: start: 20111211, end: 20111231
  5. GONAPURE [Concomitant]
     Indication: IN VITRO FERTILISATION
     Dosage: TOTAL DAILY DOSE: 225 (UNDER 1000UNIT), SEPARATE NO: 1 INTERVAL: 1 DAY
     Route: 030
     Dates: start: 20120107, end: 20120110

REACTIONS (4)
  - Surgery [Unknown]
  - Abortion missed [Recovered/Resolved]
  - Influenza [Recovering/Resolving]
  - Asthma [Recovering/Resolving]
